FAERS Safety Report 10262173 (Version 1)
Quarter: 2014Q2

REPORT INFORMATION
  Report Type: Spontaneous
  Country: US (occurrence: US)
  Receive Date: 20140626
  Receipt Date: 20140626
  Transmission Date: 20141212
  Serious: Yes (Hospitalization, Other)
  Sender: FDA-Public Use
  Company Number: US-GLENMARK GENERICS INC.-2014GMK009924

PATIENT
  Sex: Female

DRUGS (8)
  1. LITHIUM CARBONATE CAPSULES [Suspect]
     Indication: BIPOLAR DISORDER
     Dosage: UNK UNK, TID
  2. COPAXONE [Suspect]
     Indication: MULTIPLE SCLEROSIS
     Dosage: 20 MG, UNK
     Dates: start: 19990201
  3. PROGRAFT [Concomitant]
     Indication: PRODUCT USED FOR UNKNOWN INDICATION
     Dosage: IN MORNING
     Route: 048
  4. ABILIFY [Concomitant]
     Indication: PRODUCT USED FOR UNKNOWN INDICATION
     Dosage: IN THE MORNING
     Route: 048
  5. CLONAZEPAM [Concomitant]
     Indication: SLEEP DISORDER
     Dosage: UNK
     Route: 048
  6. BUPROPION [Concomitant]
     Indication: DEPRESSION
     Dosage: 1 DF, BID
     Route: 048
  7. GABAPENTIN [Concomitant]
     Indication: ANXIETY
     Dosage: 1 DF, BID
     Route: 048
  8. FLUOXETINE [Concomitant]
     Indication: PRODUCT USED FOR UNKNOWN INDICATION
     Dosage: 2 DF, QD
     Route: 048

REACTIONS (4)
  - Renal failure acute [Unknown]
  - Blood creatinine increased [Unknown]
  - Vomiting [Unknown]
  - Toxicity to various agents [Unknown]
